FAERS Safety Report 7063324-8 (Version None)
Quarter: 2010Q4

REPORT INFORMATION
  Report Type: 
  Country: None (occurrence: None)
  Receive Date: 20101026
  Receipt Date: 20101011
  Transmission Date: 20110411
  Serious: No
  Sender: FDA-Public Use
  Company Number: US-ABBOTT-07P-163-0534131-00

PATIENT
  Sex: Female
  Weight: 69.008 kg

DRUGS (2)
  1. LUPRON DEPOT [Suspect]
     Indication: UTERINE LEIOMYOMA
     Route: 030
     Dates: start: 19940101, end: 19940101
  2. LUPRON DEPOT [Suspect]
     Indication: PROPHYLAXIS

REACTIONS (6)
  - ARTHRALGIA [None]
  - BONE PAIN [None]
  - MUSCULOSKELETAL STIFFNESS [None]
  - NECK PAIN [None]
  - OSTEOPOROSIS [None]
  - TOOTH LOSS [None]
